FAERS Safety Report 16044582 (Version 1)
Quarter: 2019Q1

REPORT INFORMATION
  Report Type: Other
  Country: US (occurrence: US)
  Receive Date: 20190306
  Receipt Date: 20190306
  Transmission Date: 20190418
  Serious: No
  Sender: FDA-Public Use
  Company Number: US-YUNG SHIN PHARMACEUTICAL IND.  CO., LTD.-2063643

PATIENT
  Sex: Male

DRUGS (1)
  1. CLONIDINE HYDROCHLORIDE. [Suspect]
     Active Substance: CLONIDINE HYDROCHLORIDE
     Route: 048

REACTIONS (6)
  - Altered state of consciousness [None]
  - Urge incontinence [None]
  - Drug ineffective [None]
  - Product measured potency issue [None]
  - Dry mouth [Unknown]
  - Palpitations [None]
